FAERS Safety Report 15056524 (Version 1)
Quarter: 2018Q2

REPORT INFORMATION
  Report Type: Spontaneous
  Country: US (occurrence: US)
  Receive Date: 20180623
  Receipt Date: 20180623
  Transmission Date: 20180711
  Serious: No
  Sender: FDA-Public Use
  Company Number: US-GLENMARK PHARMACEUTICALS-2018GMK033514

PATIENT

DRUGS (3)
  1. CICLOPIROX GEL, 0.77% [Suspect]
     Active Substance: CICLOPIROX
     Indication: ILL-DEFINED DISORDER
  2. CICLOPIROX GEL, 0.77% [Suspect]
     Active Substance: CICLOPIROX
     Indication: PAIN IN EXTREMITY
     Dosage: UNK, BID
     Route: 065
  3. CICLOPIROX GEL, 0.77% [Suspect]
     Active Substance: CICLOPIROX
     Indication: PAIN IN EXTREMITY

REACTIONS (2)
  - Incorrect drug administration duration [Unknown]
  - Product use in unapproved indication [Unknown]
